FAERS Safety Report 4311525-1 (Version None)
Quarter: 2004Q1

REPORT INFORMATION
  Report Type: 
  Country: None (occurrence: None)
  Receive Date: 20040302
  Receipt Date: 20040112
  Transmission Date: 20041129
  Serious: No
  Sender: FDA-Public Use
  Company Number: 200324801BWH

PATIENT
  Age: 78 Year
  Sex: Male

DRUGS (14)
  1. LEVITRA [Suspect]
     Indication: ERECTILE DYSFUNCTION
     Dosage: 20 MG, ONCE, ORAL; 10 MG, PRN, ORAL; 30 MG, ONCE, ORAL; 20 MG, PRN, ORAL
     Route: 048
     Dates: start: 20030919
  2. LEVITRA [Suspect]
     Indication: ERECTILE DYSFUNCTION
     Dosage: 20 MG, ONCE, ORAL; 10 MG, PRN, ORAL; 30 MG, ONCE, ORAL; 20 MG, PRN, ORAL
     Route: 048
     Dates: start: 20030920
  3. LEVITRA [Suspect]
     Indication: ERECTILE DYSFUNCTION
     Dosage: 20 MG, ONCE, ORAL; 10 MG, PRN, ORAL; 30 MG, ONCE, ORAL; 20 MG, PRN, ORAL
     Route: 048
     Dates: start: 20030921
  4. LEVITRA [Suspect]
     Indication: ERECTILE DYSFUNCTION
     Dosage: 20 MG, ONCE, ORAL; 10 MG, PRN, ORAL; 30 MG, ONCE, ORAL; 20 MG, PRN, ORAL
     Route: 048
     Dates: start: 20030922
  5. DIOVAN [Concomitant]
  6. METOCLOPRAMIDE [Concomitant]
  7. PRINIVIL [Concomitant]
  8. PLENDIL [Concomitant]
  9. FOLIC ACID [Concomitant]
  10. PRAVACHOL [Concomitant]
  11. ASPIRIN [Concomitant]
  12. OTC:1-ARGININE [Concomitant]
  13. MSM [Concomitant]
  14. COENZYME Q10 [Concomitant]

REACTIONS (1)
  - ERECTILE DYSFUNCTION [None]
